FAERS Safety Report 10919514 (Version 1)
Quarter: 2015Q1

REPORT INFORMATION
  Report Type: Report from Study
  Country: FR (occurrence: FR)
  Receive Date: 20150316
  Receipt Date: 20150316
  Transmission Date: 20150721
  Serious: Yes (Death, Life-Threatening, Hospitalization, Other)
  Sender: FDA-Public Use
  Company Number: FR-009507513-1503FRA003896

PATIENT
  Age: 64 Year
  Sex: Male
  Weight: 83 kg

DRUGS (8)
  1. VANCOMYCIN [Concomitant]
     Active Substance: VANCOMYCIN
  2. TARGOCID [Concomitant]
     Active Substance: TEICOPLANIN
  3. CIFLOX (CIPROFLOXACIN HYDROCHLORIDE) [Concomitant]
     Active Substance: CIPROFLOXACIN HYDROCHLORIDE
     Dosage: UNK
     Dates: end: 20100404
  4. DORIBAX [Concomitant]
     Active Substance: DORIPENEM
  5. AMIKLIN [Concomitant]
     Active Substance: AMIKACIN SULFATE
  6. TIENAM IV 250MG/250MG, POUDRE POUR PERFUSION [Suspect]
     Active Substance: CILASTATIN SODIUM\IMIPENEM
     Dosage: UNK
     Dates: end: 20100404
  7. ZYVOXID [Concomitant]
     Active Substance: LINEZOLID
     Indication: STAPHYLOCOCCAL INFECTION
  8. AMBISOME [Concomitant]
     Active Substance: AMPHOTERICIN B
     Indication: ASPERGILLUS INFECTION

REACTIONS (5)
  - Candida sepsis [Fatal]
  - Cardiac failure [Unknown]
  - Septic shock [Fatal]
  - Disseminated intravascular coagulation [Unknown]
  - Polyserositis [Not Recovered/Not Resolved]

NARRATIVE: CASE EVENT DATE: 20100324
